FAERS Safety Report 6140618-1 (Version None)
Quarter: 2009Q1

REPORT INFORMATION
  Report Type: 
  Country: None (occurrence: None)
  Receive Date: 20090331
  Receipt Date: 20090319
  Transmission Date: 20090719
  Serious: Yes (Hospitalization)
  Sender: FDA-Public Use
  Company Number: 2009AL001670

PATIENT
  Age: 51 Year
  Sex: Female

DRUGS (9)
  1. CITALOPRAM HYDROBROMIDE [Suspect]
     Indication: DEPRESSION
     Dosage: 10 MG; QD; PO
     Route: 048
     Dates: start: 20090213, end: 20090218
  2. BENDROFLUMETHIAZIDE [Concomitant]
  3. IRBESARTAN [Concomitant]
  4. DICLOFENAC [Concomitant]
  5. OMEPRAZOLE [Concomitant]
  6. SALBUTAMOL [Concomitant]
  7. ADOCRTYL [Concomitant]
  8. LIDOCAINE [Concomitant]
  9. BECLOMETHASONE DIPROPIONATE [Concomitant]

REACTIONS (3)
  - HEADACHE [None]
  - VISION BLURRED [None]
  - VOMITING [None]
